FAERS Safety Report 17416235 (Version 1)
Quarter: 2020Q1

REPORT INFORMATION
  Report Type: Report from Study
  Country: US (occurrence: US)
  Receive Date: 20200213
  Receipt Date: 20200213
  Transmission Date: 20200409
  Serious: Yes (Hospitalization)
  Sender: FDA-Public Use
  Company Number: US-EXELIXIS-CABO-19026449

PATIENT
  Sex: Male

DRUGS (1)
  1. CABOMETYX [Suspect]
     Active Substance: CABOZANTINIB S-MALATE
     Indication: RENAL CELL CARCINOMA STAGE IV
     Dosage: 40 MG
     Dates: end: 20200201

REACTIONS (7)
  - Fatigue [Unknown]
  - Decreased appetite [Unknown]
  - Taste disorder [Unknown]
  - Pleural effusion [Unknown]
  - Nausea [Unknown]
  - Therapeutic product effect decreased [Unknown]
  - Flank pain [Unknown]
